FAERS Safety Report 16407940 (Version 1)
Quarter: 2019Q2

REPORT INFORMATION
  Report Type: Spontaneous
  Country: AR (occurrence: AR)
  Receive Date: 20190610
  Receipt Date: 20190610
  Transmission Date: 20190711
  Serious: Yes (Death, Life-Threatening, Other)
  Sender: FDA-Public Use
  Company Number: AR-B.I. PHARMACEUTICALS,INC./RIDGEFIELD-2019-MI-000471

PATIENT
  Age: 72 Year
  Sex: Male

DRUGS (1)
  1. OFEV [Suspect]
     Active Substance: NINTEDANIB
     Indication: IDIOPATHIC PULMONARY FIBROSIS
     Dosage: C?PSULAS BLANDAS
     Route: 048
     Dates: start: 20170701, end: 20190315

REACTIONS (3)
  - Diarrhoea [Unknown]
  - Lung transplant [Fatal]
  - Procedural complication [Fatal]

NARRATIVE: CASE EVENT DATE: 20190515
